FAERS Safety Report 15823893 (Version 1)
Quarter: 2019Q1

REPORT INFORMATION
  Report Type: Spontaneous
  Country: DE (occurrence: DE)
  Receive Date: 20190114
  Receipt Date: 20190114
  Transmission Date: 20190417
  Serious: Yes (Other)
  Sender: FDA-Public Use
  Company Number: DE-009507513-1901DEU001013

PATIENT
  Age: 32 Year
  Sex: Male

DRUGS (2)
  1. FINASTERIDE. [Suspect]
     Active Substance: FINASTERIDE
     Dosage: UNK
     Dates: start: 2014
  2. FINASTERIDE. [Suspect]
     Active Substance: FINASTERIDE
     Indication: ALOPECIA
     Dosage: UNK
     Dates: start: 201501, end: 201511

REACTIONS (10)
  - Abdominal pain lower [Unknown]
  - Sleep disorder [Unknown]
  - Panic attack [Unknown]
  - Loss of libido [Unknown]
  - Testicular atrophy [Unknown]
  - Depression [Unknown]
  - Ejaculation disorder [Unknown]
  - Erectile dysfunction [Unknown]
  - Suicidal ideation [Unknown]
  - Orgasm abnormal [Unknown]

NARRATIVE: CASE EVENT DATE: 2014
